FAERS Safety Report 8916027 (Version 1)
Quarter: 2012Q4

REPORT INFORMATION
  Report Type: 
  Country: US (occurrence: US)
  Receive Date: 20121119
  Receipt Date: 20121119
  Transmission Date: 20130627
  Serious: Yes (Other)
  Sender: FDA-Public Use
  Company Number: US-ASTRAZENECA-2012SE85191

PATIENT
  Age: 64 Year
  Sex: Female
  Weight: 68 kg

DRUGS (13)
  1. CRESTOR [Suspect]
     Route: 048
  2. ATENOLOL [Suspect]
     Indication: HEART RATE ABNORMAL
     Route: 048
  3. ALPRAZOLAM [Concomitant]
     Indication: ANXIETY
  4. EXLANSOPRAZOLE [Concomitant]
  5. PROZAC [Concomitant]
     Indication: ANXIETY
  6. ARICEPT [Concomitant]
     Indication: MEMORY IMPAIRMENT
  7. GABAPENTIN [Concomitant]
     Indication: BURNING SENSATION
  8. VICODAN [Concomitant]
     Indication: PAIN
     Dosage: 500MG EVERY 6 HORULY AS REQUIRED
  9. TORESMIDE [Concomitant]
  10. DILTIAZEM [Concomitant]
  11. POTASSIUM [Concomitant]
  12. JANUVIA [Concomitant]
  13. KETERA [Concomitant]

REACTIONS (7)
  - Brain neoplasm malignant [Unknown]
  - Blood pressure fluctuation [Unknown]
  - Diabetes mellitus [Unknown]
  - Balance disorder [Unknown]
  - Weight increased [Unknown]
  - Asthma [Unknown]
  - Memory impairment [Unknown]
